FAERS Safety Report 8711021 (Version 2)
Quarter: 2012Q4

REPORT INFORMATION
  Report Type: Report from Study
  Country: US (occurrence: US)
  Receive Date: 20120807
  Receipt Date: 20120914
  Transmission Date: 20130627
  Serious: Yes (Other)
  Sender: FDA-Public Use
  Company Number: US-TEVA-352195USA

PATIENT
  Age: 5 Year
  Sex: Male

DRUGS (14)
  1. VINCRISTINE [Suspect]
     Indication: B PRECURSOR TYPE ACUTE LEUKAEMIA
     Dosage: 2 milligram total
     Route: 042
     Dates: start: 20100611
  2. SPRYCEL [Suspect]
     Indication: B PRECURSOR TYPE ACUTE LEUKAEMIA
     Dosage: 1120 milligram total
     Route: 048
     Dates: start: 20100611
  3. MERCAPTOPURINE [Suspect]
     Indication: B PRECURSOR TYPE ACUTE LEUKAEMIA
     Dosage: 2800 milligram total
     Route: 048
     Dates: start: 20100611
  4. METHOTREXATE [Suspect]
     Indication: B PRECURSOR TYPE ACUTE LEUKAEMIA
     Dosage: 110 milligram total
     Route: 048
     Dates: start: 20100611
  5. PREDNISONE [Suspect]
     Indication: B PRECURSOR TYPE ACUTE LEUKAEMIA
     Dosage: 270 milligram total
     Route: 048
     Dates: start: 20100611
  6. ETOPOSIDE [Suspect]
     Indication: PRECURSOR B-LYMPHOBLASTIC LYMPHOMA
     Dosage: 100 milligram/Sq. meter
     Route: 042
     Dates: start: 20100611
  7. HYDROCORTISONE [Suspect]
     Indication: PRECURSOR B-LYMPHOBLASTIC LYMPHOMA
     Dosage: 1 Dosage Form
     Dates: start: 20100611
  8. IFOSFAMIDE [Suspect]
     Indication: PRECURSOR B-LYMPHOBLASTIC LYMPHOMA
     Dosage: 1800 milligram/sq. meter
     Route: 042
     Dates: start: 20120611
  9. CYCLOPHOSPHAMIDE [Suspect]
     Indication: PRECURSOR B-LYMPHOBLASTIC LYMPHOMA
     Dosage: 300 milligram/Sq. meter
     Route: 042
     Dates: start: 20100611
  10. CYTARABINE [Suspect]
     Indication: PRECURSOR B-LYMPHOBLASTIC LYMPHOMA
     Dosage: 3000 Milligram/Sq. Meter
     Route: 042
     Dates: start: 20100611
  11. DAUNORUBICIN [Suspect]
     Indication: PRECURSOR B-LYMPHOBLASTIC LYMPHOMA
     Dosage: 45 milligram/sq.meter
     Route: 042
  12. ASPARAGINASE [Suspect]
     Indication: PRECURSOR B-LYMPHOBLASTIC LYMPHOMA
     Dosage: 1 dosage form
     Route: 030
     Dates: start: 20100611
  13. ASPARAGINASE [Suspect]
     Indication: PRECURSOR B-LYMPHOBLASTIC LYMPHOMA
     Dosage: 1 dosage form
     Route: 030
     Dates: start: 20100611
  14. DEXAMETHASONE [Suspect]
     Indication: PRECURSOR B-LYMPHOBLASTIC LYMPHOMA
     Dosage: 3 Milligram/sq. Meter 2/1 Day
     Route: 048
     Dates: start: 20100611

REACTIONS (2)
  - Alanine aminotransferase increased [Not Recovered/Not Resolved]
  - Aspartate aminotransferase increased [Unknown]
